FAERS Safety Report 25814452 (Version 1)
Quarter: 2025Q3

REPORT INFORMATION
  Report Type: Report from Study
  Country: US (occurrence: US)
  Receive Date: 20250917
  Receipt Date: 20250917
  Transmission Date: 20251021
  Serious: Yes (Other)
  Sender: ALEXION PHARMACEUTICALS
  Company Number: US-AstraZeneca-CH-00950728AP

PATIENT
  Sex: Female

DRUGS (1)
  1. OLAPARIB [Suspect]
     Active Substance: OLAPARIB
     Route: 065

REACTIONS (5)
  - Deafness unilateral [Unknown]
  - Pathological fracture [Unknown]
  - Memory impairment [Unknown]
  - Muscular weakness [Unknown]
  - Product use complaint [Unknown]
